FAERS Safety Report 6427461-0 (Version None)
Quarter: 2009Q4

REPORT INFORMATION
  Report Type: 
  Country: None (occurrence: None)
  Receive Date: 20091030
  Receipt Date: 20091016
  Transmission Date: 20100525
  Serious: Yes (Hospitalization)
  Sender: FDA-Public Use
  Company Number: CC09-269

PATIENT
  Sex: Male

DRUGS (2)
  1. EPINEPHRINE INHALATION [Suspect]
     Indication: ASTHMA
  2. UNKNOWN [Suspect]

REACTIONS (3)
  - BRONCHITIS [None]
  - CHRONIC OBSTRUCTIVE PULMONARY DISEASE [None]
  - TOTAL LUNG CAPACITY DECREASED [None]
